FAERS Safety Report 7500945-X (Version None)
Quarter: 2011Q2

REPORT INFORMATION
  Report Type: 
  Country: None (occurrence: None)
  Receive Date: 20110524
  Receipt Date: 20110520
  Transmission Date: 20111010
  Serious: Yes (Other)
  Sender: FDA-Public Use
  Company Number: US-PFIZER INC-2011103292

PATIENT
  Sex: Male

DRUGS (9)
  1. IBUPROFEN [Suspect]
  2. ZOLOFT [Suspect]
     Indication: DEPRESSION
     Dosage: 50 MG, 1X/DAY
  3. MS CONTIN [Suspect]
     Dosage: 30 MG, UNK
     Dates: end: 20110101
  4. LORAZEPAM [Suspect]
     Dosage: UNK
  5. TUSSIONEX [Suspect]
     Dosage: UNK
  6. CLONIDINE [Suspect]
     Dosage: UNK
  7. ZOLOFT [Suspect]
     Indication: ANXIETY
  8. ULTRAM [Suspect]
     Dosage: UNK
  9. ZITHROMAX [Suspect]
     Dosage: UNK

REACTIONS (4)
  - BRONCHITIS [None]
  - BACK PAIN [None]
  - WITHDRAWAL SYNDROME [None]
  - EAR PAIN [None]
